FAERS Safety Report 8843670 (Version 5)
Quarter: 2013Q3

REPORT INFORMATION
  Report Type: Report from Study
  Country: RO (occurrence: RO)
  Receive Date: 20121016
  Receipt Date: 20130705
  Transmission Date: 20140515
  Serious: Yes (Hospitalization)
  Sender: FDA-Public Use
  Company Number: RO-ROCHE-1143308

PATIENT
  Age: 75 Year
  Sex: Female
  Weight: 74.1 kg

DRUGS (6)
  1. TRASTUZUMAB [Suspect]
     Indication: BREAST CANCER
     Dosage: LOADING DOSE
     Route: 042
     Dates: start: 20110428
  2. TRASTUZUMAB [Suspect]
     Dosage: LAST DOSE PRIOR TO AE 04 OCT 2012, MAINTENANCE DOSE
     Route: 042
  3. DOCETAXEL [Suspect]
     Indication: BREAST CANCER
     Dosage: LAST DOSE PRIOR TO AE 01 SEP 2011, 135MG
     Route: 042
     Dates: start: 20110428
  4. PERINDOPRILUM [Concomitant]
     Indication: HYPERTENSION
     Route: 065
     Dates: start: 200902
  5. TRIMETAZIDINE [Concomitant]
     Indication: HYPERTENSION
     Route: 065
     Dates: start: 200902, end: 20121015
  6. INDAPAMIDUM [Concomitant]
     Indication: HYPERTENSION
     Route: 065
     Dates: start: 200902, end: 20121015

REACTIONS (1)
  - Lacunar infarction [Not Recovered/Not Resolved]
